FAERS Safety Report 10427911 (Version 1)
Quarter: 2014Q3

REPORT INFORMATION
  Report Type: Spontaneous
  Country: US (occurrence: US)
  Receive Date: 20140903
  Receipt Date: 20140903
  Transmission Date: 20150326
  Serious: Yes (Hospitalization)
  Sender: FDA-Public Use
  Company Number: US-JNJFOC-20140820008

PATIENT
  Sex: Female

DRUGS (2)
  1. MAGNESIUM SULFATE [Suspect]
     Active Substance: MAGNESIUM SULFATE
     Indication: PREMATURE LABOUR
     Route: 065
  2. IBUPROFEN. [Suspect]
     Active Substance: IBUPROFEN
     Indication: PREMATURE LABOUR
     Route: 065

REACTIONS (4)
  - Intensive care [Unknown]
  - Premature labour [Unknown]
  - Exposure during pregnancy [Unknown]
  - Pulmonary oedema [Unknown]
